FAERS Safety Report 26107593 (Version 1)
Quarter: 2025Q4

REPORT INFORMATION
  Report Type: Spontaneous
  Country: US (occurrence: None)
  Receive Date: 20251126
  Receipt Date: 20251126
  Transmission Date: 20260117
  Serious: Yes (Death)
  Sender: FDA-CTU
  Company Number: None

PATIENT
  Age: 83 Year
  Sex: Female

DRUGS (7)
  1. RAYALDEE [Suspect]
     Active Substance: CALCIFEDIOL
     Indication: Blood parathyroid hormone increased
     Dosage: ?30 MG DAILY ORAL
     Route: 048
     Dates: start: 20190924
  2. ASPIRIN [Concomitant]
     Active Substance: ASPIRIN
  3. ALPRAZOLAM [Concomitant]
     Active Substance: ALPRAZOLAM
  4. CARVEDILOL [Concomitant]
     Active Substance: CARVEDILOL
  5. DOCUSATE [Concomitant]
     Active Substance: DOCUSATE
  6. FLUOXETINE [Concomitant]
     Active Substance: FLUOXETINE HYDROCHLORIDE
  7. FUROSEMIDE [Concomitant]
     Active Substance: FUROSEMIDE

REACTIONS (1)
  - Death [None]

NARRATIVE: CASE EVENT DATE: 20250924
